FAERS Safety Report 16256863 (Version 4)
Quarter: 2019Q3

REPORT INFORMATION
  Report Type: Report from Study
  Country: None (occurrence: BE)
  Receive Date: 20190430
  Receipt Date: 20190924
  Transmission Date: 20191004
  Serious: Yes (Hospitalization, Other)
  Sender: FDA-Public Use
  Company Number: BE-ABBVIE-19S-013-2761124-00

PATIENT
  Sex: Male

DRUGS (5)
  1. DUODOPA [Suspect]
     Active Substance: CARBIDOPA\LEVODOPA
     Dosage: MD= 8ML, CD= 2.7ML/HR DURING 16HRS, ED= 2.3ML
     Route: 050
     Dates: start: 20181018, end: 20190426
  2. DUODOPA [Suspect]
     Active Substance: CARBIDOPA\LEVODOPA
     Indication: PARKINSON^S DISEASE
     Dosage: MD= 8ML, CD= 1.8ML/HR DURING 16HRS, ED= 1.5ML
     Route: 050
     Dates: start: 20180827, end: 20180904
  3. DUODOPA [Suspect]
     Active Substance: CARBIDOPA\LEVODOPA
     Dosage: MD=8ML CD=2.5ML/HR DURING 16HRS ED=1.8ML
     Route: 050
     Dates: start: 20190509
  4. DUODOPA [Suspect]
     Active Substance: CARBIDOPA\LEVODOPA
     Dosage: MD= 8ML, CD= 2.5ML/HR DURING 16HRS, ED= 2ML
     Route: 050
     Dates: start: 20190426, end: 20190509
  5. DUODOPA [Suspect]
     Active Substance: CARBIDOPA\LEVODOPA
     Dosage: DOSES CONTINUOUSLY MONITORED AND ADAPTED
     Route: 050
     Dates: start: 20180904, end: 20181018

REACTIONS (8)
  - Device alarm issue [Unknown]
  - Nervousness [Recovering/Resolving]
  - Pneumonia [Recovering/Resolving]
  - Therapeutic product effect incomplete [Recovering/Resolving]
  - Tremor [Recovering/Resolving]
  - Freezing phenomenon [Recovering/Resolving]
  - Dyspnoea [Recovering/Resolving]
  - Dyskinesia [Recovering/Resolving]

NARRATIVE: CASE EVENT DATE: 2019
